FAERS Safety Report 7241151-6 (Version None)
Quarter: 2011Q1

REPORT INFORMATION
  Report Type: 
  Country: None (occurrence: None)
  Receive Date: 20110124
  Receipt Date: 20110118
  Transmission Date: 20110831
  Serious: Yes (Other)
  Sender: FDA-Public Use
  Company Number: BE-SANOFI-AVENTIS-2010SA074070

PATIENT
  Age: 40 Year
  Sex: Female
  Weight: 56 kg

DRUGS (3)
  1. LANTUS [Suspect]
     Indication: TYPE 1 DIABETES MELLITUS
     Route: 058
     Dates: start: 20060301
  2. LEVOTHYROXINE SODIUM [Concomitant]
     Route: 048
     Dates: start: 20040101
  3. NOVORAPID [Concomitant]
     Indication: TYPE 1 DIABETES MELLITUS
     Route: 058
     Dates: start: 20050801

REACTIONS (1)
  - GASTRIC CANCER [None]
